FAERS Safety Report 15210861 (Version 1)
Quarter: 2018Q3

REPORT INFORMATION
  Report Type: Report from Study
  Country: US (occurrence: US)
  Receive Date: 20180728
  Receipt Date: 20180728
  Transmission Date: 20181010
  Serious: Yes (Hospitalization, Disabling, Other)
  Sender: FDA-Public Use
  Company Number: US-SA-2018SA194995

PATIENT
  Age: 59 Year
  Sex: Male

DRUGS (2)
  1. INSULIN GLARGINE [Suspect]
     Active Substance: INSULIN GLARGINE
     Dosage: 30 U, QD
     Route: 058
  2. INSULIN GLARGINE [Suspect]
     Active Substance: INSULIN GLARGINE
     Indication: DIABETES MELLITUS
     Dosage: 80 U, HS
     Route: 058

REACTIONS (12)
  - Scar [Not Recovered/Not Resolved]
  - Infection [Not Recovered/Not Resolved]
  - Underdose [Unknown]
  - Fall [Recovered/Resolved]
  - Pyrexia [Not Recovered/Not Resolved]
  - Hyperhidrosis [Recovered/Resolved]
  - Blood glucose fluctuation [Not Recovered/Not Resolved]
  - Unresponsive to stimuli [Not Recovered/Not Resolved]
  - Device malfunction [Unknown]
  - Loss of consciousness [Recovered/Resolved]
  - Pyrexia [Not Recovered/Not Resolved]
  - Condition aggravated [Recovered/Resolved]

NARRATIVE: CASE EVENT DATE: 201801
